FAERS Safety Report 8564583-2 (Version None)
Quarter: 2012Q3

REPORT INFORMATION
  Report Type: 
  Country: None (occurrence: None)
  Receive Date: 20120803
  Receipt Date: 20120723
  Transmission Date: 20120928
  Serious: Yes (Hospitalization)
  Sender: FDA-Public Use
  Company Number: CN-SANOFI-AVENTIS-2012SA053803

PATIENT
  Age: 66 Year
  Sex: Male
  Weight: 79 kg

DRUGS (2)
  1. PLAVIX [Suspect]
     Indication: ANTICOAGULANT THERAPY
     Route: 048
     Dates: start: 20090115, end: 20090507
  2. ASPIRIN [Concomitant]
     Indication: ANTICOAGULANT THERAPY
     Dates: end: 20020507

REACTIONS (3)
  - UPPER GASTROINTESTINAL HAEMORRHAGE [None]
  - GASTRIC MUCOSAL LESION [None]
  - HAEMATEMESIS [None]
